FAERS Safety Report 8491357-3 (Version None)
Quarter: 2012Q3

REPORT INFORMATION
  Report Type: 
  Country: None (occurrence: None)
  Receive Date: 20120706
  Receipt Date: 20120704
  Transmission Date: 20120928
  Serious: Yes (Death, Other)
  Sender: FDA-Public Use
  Company Number: PHHY2012JP055273

PATIENT
  Age: 60 Year
  Sex: Female

DRUGS (2)
  1. ZOLEDRONIC ACID [Suspect]
     Indication: METASTASES TO BONE
     Dosage: UNK UKN, UNK
     Route: 041
  2. CHEMOTHERAPEUTICS [Concomitant]

REACTIONS (3)
  - OSTEONECROSIS OF JAW [None]
  - BREAST CANCER METASTATIC [None]
  - ORAL INFECTION [None]
